FAERS Safety Report 19153571 (Version 3)
Quarter: 2021Q3

REPORT INFORMATION
  Report Type: Spontaneous
  Country: US (occurrence: US)
  Receive Date: 20210419
  Receipt Date: 20210706
  Transmission Date: 20211014
  Serious: No
  Sender: FDA-Public Use
  Company Number: US-SA-2021SA115541

PATIENT
  Age: 72 Year
  Sex: Male

DRUGS (1)
  1. LANTUS SOLOSTAR [Suspect]
     Active Substance: INSULIN GLARGINE
     Indication: TYPE 2 DIABETES MELLITUS
     Dosage: 40 IU, Q12H
     Route: 065
     Dates: start: 202102

REACTIONS (4)
  - Device operational issue [Unknown]
  - Inappropriate schedule of product administration [Unknown]
  - Drug dose omission by device [Unknown]
  - Injection site injury [Unknown]
